FAERS Safety Report 7391956-6 (Version None)
Quarter: 2011Q2

REPORT INFORMATION
  Report Type: 
  Country: None (occurrence: None)
  Receive Date: 20110404
  Receipt Date: 20110328
  Transmission Date: 20111010
  Serious: Yes (Hospitalization)
  Sender: FDA-Public Use
  Company Number: US-B.I. PHARMACEUTICALS,INC./RIDGEFIELD-2010-BP-08447BP

PATIENT
  Sex: Female
  Weight: 106.1 kg

DRUGS (8)
  1. LORTAB [Concomitant]
     Dates: start: 20100330
  2. ULTRAM [Concomitant]
     Dates: start: 20091221, end: 20100706
  3. MOBIC [Suspect]
     Indication: OSTEOARTHRITIS
     Dosage: 15 MG
     Route: 048
     Dates: start: 20100330, end: 20100706
  4. SKELAXIN [Concomitant]
     Dates: start: 20091106, end: 20100706
  5. LEXAPRO [Concomitant]
     Dates: start: 20100425
  6. DESYREL [Concomitant]
     Dates: start: 20100426
  7. VOLTAREN [Suspect]
     Indication: OSTEOARTHRITIS
     Dosage: 150 MG
     Route: 048
     Dates: start: 20100312, end: 20100706
  8. DARVOCET-N 50 [Concomitant]
     Dates: start: 20100319

REACTIONS (3)
  - NON-CARDIAC CHEST PAIN [None]
  - GASTROOESOPHAGEAL REFLUX DISEASE [None]
  - OESOPHAGEAL SPASM [None]
